FAERS Safety Report 16864101 (Version 2)
Quarter: 2019Q4

REPORT INFORMATION
  Report Type: Report from Study
  Country: US (occurrence: US)
  Receive Date: 20190927
  Receipt Date: 20191203
  Transmission Date: 20200122
  Serious: Yes (Hospitalization)
  Sender: FDA-Public Use
  Company Number: US-BIOGEN-2019BI00789625

PATIENT
  Age: 56 Year
  Sex: Female

DRUGS (1)
  1. TYSABRI [Suspect]
     Active Substance: NATALIZUMAB
     Indication: MULTIPLE SCLEROSIS
     Route: 065
     Dates: start: 20181004

REACTIONS (4)
  - Unintentional use for unapproved indication [Unknown]
  - Tremor [Unknown]
  - Neuromyelitis optica spectrum disorder [Unknown]
  - Hemianaesthesia [Unknown]

NARRATIVE: CASE EVENT DATE: 20190729
